FAERS Safety Report 8247007-4 (Version None)
Quarter: 2012Q1

REPORT INFORMATION
  Report Type: 
  Country: None (occurrence: None)
  Receive Date: 20120330
  Receipt Date: 20120330
  Transmission Date: 20120608
  Serious: Yes (Hospitalization)
  Sender: FDA-Public Use
  Company Number: None

PATIENT
  Age: 78 Year
  Sex: Female
  Weight: 108.8 kg

DRUGS (12)
  1. ERTAPENEM [Concomitant]
  2. PROMETHAZINE [Suspect]
     Indication: ANTIEMETIC SUPPORTIVE CARE
     Dosage: 12.5 MG
     Route: 042
     Dates: start: 20120327, end: 20120327
  3. DALTEPARIN SODIUM [Concomitant]
  4. ONDANSETRON [Concomitant]
  5. IPRATROPIUM BROMIDE AND ALBUTEROL SULFATE [Concomitant]
  6. PANTOPRAZOLE [Concomitant]
  7. LOSARTAN POTASSIUM [Concomitant]
  8. CARVEDILOL [Concomitant]
  9. RIVASTIGMINE [Concomitant]
  10. AMIODARONE HCL [Concomitant]
  11. FUROSEMIDE [Concomitant]
  12. MULTIVITAMIN + ZINC [Concomitant]

REACTIONS (2)
  - MENTAL STATUS CHANGES [None]
  - DYSTONIA [None]
